FAERS Safety Report 5213334-8 (Version None)
Quarter: 2007Q1

REPORT INFORMATION
  Report Type: 
  Country: None (occurrence: None)
  Receive Date: 20070119
  Receipt Date: 20060413
  Transmission Date: 20070707
  Serious: No
  Sender: FDA-Public Use
  Company Number: US-GLAXOSMITHKLINE-A0601702A

PATIENT
  Age: 49 Year
  Sex: Male

DRUGS (5)
  1. ARIXTRA [Suspect]
     Indication: DRUG USE FOR UNKNOWN INDICATION
     Dosage: 7.5MG PER DAY
     Route: 058
     Dates: start: 20060317
  2. TYLENOL W/ CODEINE [Concomitant]
  3. EPZICOM [Concomitant]
  4. UNKNOWN MEDICATION [Concomitant]
  5. LORAZEPAM [Concomitant]

REACTIONS (1)
  - CONTUSION [None]
